FAERS Safety Report 9098681 (Version 1)
Quarter: 2013Q1

REPORT INFORMATION
  Report Type: Spontaneous
  Country: US (occurrence: US)
  Receive Date: 20130213
  Receipt Date: 20130213
  Transmission Date: 20140127
  Serious: No
  Sender: FDA-Public Use
  Company Number: US-ALLERGAN-1300866US

PATIENT
  Sex: Female

DRUGS (3)
  1. LASTACAFT [Suspect]
     Indication: PRODUCT USED FOR UNKNOWN INDICATION
     Dosage: 2 GTT, SINGLE
     Route: 047
     Dates: start: 20130118, end: 20130118
  2. LEVOTHYROXINE [Concomitant]
     Indication: HYPOTHYROIDISM
     Dosage: 15 ?G, UNK
     Route: 048
  3. ZATIDOR [Concomitant]
     Indication: EYE ALLERGY
     Dosage: 2 GTT, PRN
     Route: 047

REACTIONS (5)
  - Fatigue [Not Recovered/Not Resolved]
  - Influenza like illness [Recovering/Resolving]
  - Pain [Recovering/Resolving]
  - Somnolence [Recovering/Resolving]
  - Somnolence [Recovering/Resolving]
